FAERS Safety Report 9732650 (Version 2)
Quarter: 2013Q4

REPORT INFORMATION
  Report Type: Spontaneous
  Country: FR (occurrence: FR)
  Receive Date: 20131205
  Receipt Date: 20131219
  Transmission Date: 20140711
  Serious: Yes (Hospitalization)
  Sender: FDA-Public Use
  Company Number: FR-INCYTE CORPORATION-2013IN002862

PATIENT
  Age: 63 Year
  Sex: Male

DRUGS (6)
  1. JAKAVI [Suspect]
     Indication: MYELOFIBROSIS
     Dosage: 15 MG, BID
     Route: 048
     Dates: start: 20130221, end: 201305
  2. JAKAVI [Suspect]
     Dosage: 20 MG, BID
     Route: 048
     Dates: start: 20130507
  3. HYDREA [Concomitant]
     Dosage: UNK
     Dates: start: 201305
  4. TAHOR [Concomitant]
  5. PLAVIX [Concomitant]
  6. INSULIN [Concomitant]

REACTIONS (3)
  - Adrenal insufficiency [Recovering/Resolving]
  - General physical health deterioration [Unknown]
  - Abdominal pain [Unknown]
